FAERS Safety Report 7285782-6 (Version None)
Quarter: 2011Q1

REPORT INFORMATION
  Report Type: 
  Country: None (occurrence: None)
  Receive Date: 20110210
  Receipt Date: 20110204
  Transmission Date: 20110831
  Serious: Yes (Life-Threatening)
  Sender: FDA-Public Use
  Company Number: PHHY2011GB09929

PATIENT
  Age: 65 Year
  Sex: Male

DRUGS (2)
  1. FUSIDIC ACID [Interacting]
     Indication: SEPTIC ARTHRITIS STAPHYLOCOCCAL
     Dosage: 500 MG, TID
     Route: 048
  2. SIMVASTATIN [Suspect]
     Indication: HYPERCHOLESTEROLAEMIA
     Dosage: 500 MG, TID

REACTIONS (13)
  - HYPOXIA [None]
  - MUSCLE CONTRACTIONS INVOLUNTARY [None]
  - MUSCULAR WEAKNESS [None]
  - BLOOD CREATINE PHOSPHOKINASE INCREASED [None]
  - REFLEXES ABNORMAL [None]
  - OEDEMA [None]
  - HEPATIC STEATOSIS [None]
  - RHABDOMYOLYSIS [None]
  - MYOPATHY [None]
  - HYPOTENSION [None]
  - MUSCLE NECROSIS [None]
  - RENAL FAILURE ACUTE [None]
  - DRUG INTERACTION [None]
